FAERS Safety Report 11037258 (Version 2)
Quarter: 2015Q2

REPORT INFORMATION
  Report Type: Spontaneous
  Country: US (occurrence: US)
  Receive Date: 20150416
  Receipt Date: 20150619
  Transmission Date: 20150821
  Serious: No
  Sender: FDA-Public Use
  Company Number: US-PFIZER INC-2015122938

PATIENT
  Age: 90 Year
  Sex: Female
  Weight: 79 kg

DRUGS (1)
  1. ADVIL PM [Suspect]
     Active Substance: DIPHENHYDRAMINE CITRATE\IBUPROFEN
     Indication: SLEEP DISORDER
     Dosage: 200 MG, AS NEEDED (1 IN EVENING IF I DID NOT FALL ASLEEP)

REACTIONS (1)
  - Drug ineffective [Not Recovered/Not Resolved]
